FAERS Safety Report 12603250 (Version 2)
Quarter: 2016Q4

REPORT INFORMATION
  Report Type: Report from Study
  Country: FR (occurrence: FR)
  Receive Date: 20160728
  Receipt Date: 20161109
  Transmission Date: 20170207
  Serious: Yes (Hospitalization, Other)
  Sender: FDA-Public Use
  Company Number: DE-ACTELION-A-NJ2016-140023

PATIENT
  Age: 66 Year
  Sex: Male

DRUGS (12)
  1. ADCIRCA [Suspect]
     Active Substance: TADALAFIL
     Indication: PULMONARY HYPERTENSION
     Dosage: 20 MG, QD
     Route: 065
     Dates: start: 201602
  2. AMLOR [Concomitant]
     Active Substance: AMLODIPINE BESYLATE
  3. VENTAVIS [Suspect]
     Active Substance: ILOPROST
     Dosage: 5 MCG, UNK
     Route: 055
     Dates: start: 20160625, end: 20160905
  4. VENTAVIS [Suspect]
     Active Substance: ILOPROST
     Indication: PULMONARY ARTERIAL HYPERTENSION
     Dosage: 9ID
     Route: 055
  5. VENTAVIS [Suspect]
     Active Substance: ILOPROST
     Dosage: 5 MCG, 6X DAILY
     Route: 055
     Dates: start: 20160212, end: 20160828
  6. ESIDREX [Concomitant]
     Active Substance: HYDROCHLOROTHIAZIDE
  7. VOLIBRIS [Suspect]
     Active Substance: AMBRISENTAN
     Indication: PULMONARY HYPERTENSION
     Dosage: 10 MG, QD
     Route: 048
     Dates: start: 20160212
  8. TAHOR [Concomitant]
     Active Substance: ATORVASTATIN CALCIUM
  9. ALLOPURINOL. [Concomitant]
     Active Substance: ALLOPURINOL
  10. VENTAVIS [Suspect]
     Active Substance: ILOPROST
     Dosage: 6ID
     Route: 055
  11. INNOHEP [Concomitant]
     Active Substance: TINZAPARIN SODIUM
     Dosage: UNK
     Dates: start: 20160618
  12. OXYCONTIN [Concomitant]
     Active Substance: OXYCODONE HYDROCHLORIDE

REACTIONS (13)
  - Subdural haematoma [Unknown]
  - Coma [Unknown]
  - Tongue ulceration [Unknown]
  - Conjunctivitis [Unknown]
  - Paraesthesia oral [Unknown]
  - Tongue injury [Unknown]
  - Tongue haemorrhage [Unknown]
  - Dysuria [Unknown]
  - Oral discomfort [Unknown]
  - Polyuria [Unknown]
  - Ocular hyperaemia [Unknown]
  - Headache [Unknown]
  - Prostatism [Recovering/Resolving]

NARRATIVE: CASE EVENT DATE: 2016
